FAERS Safety Report 21280303 (Version 3)
Quarter: 2022Q3

REPORT INFORMATION
  Report Type: Report from Study
  Country: FR (occurrence: None)
  Receive Date: 20220901
  Receipt Date: 20220902
  Transmission Date: 20221027
  Serious: Yes (Death, Hospitalization, Other)
  Sender: FDA-Public Use
  Company Number: 2022A299348

PATIENT
  Age: 761 Month
  Sex: Male
  Weight: 59 kg

DRUGS (4)
  1. EVUSHELD [Suspect]
     Active Substance: CILGAVIMAB\TIXAGEVIMAB
     Indication: COVID-19 prophylaxis
     Dosage: TIXAGEVIMAB 150 MG/CILGAVIMAB 150 MG ONCE/SINGLE ADMINISTRATION
     Route: 065
     Dates: start: 20220111, end: 20220111
  2. PROGRAF [Concomitant]
     Active Substance: TACROLIMUS
  3. CELLCEPT [Concomitant]
     Active Substance: MYCOPHENOLATE MOFETIL
  4. PREDNISONE [Concomitant]
     Active Substance: PREDNISONE

REACTIONS (7)
  - Complications of transplanted lung [Fatal]
  - COVID-19 [Unknown]
  - Respiratory disorder [Unknown]
  - Staphylococcal infection [Unknown]
  - Oxygen saturation decreased [Unknown]
  - Weight decreased [Unknown]
  - Product use issue [Unknown]

NARRATIVE: CASE EVENT DATE: 20220111
